FAERS Safety Report 9404609 (Version 1)
Quarter: 2013Q3

REPORT INFORMATION
  Report Type: Spontaneous
  Country: US (occurrence: US)
  Receive Date: 20130717
  Receipt Date: 20130717
  Transmission Date: 20140515
  Serious: No
  Sender: FDA-Public Use
  Company Number: US-PFIZER INC-2013209272

PATIENT
  Age: 66 Year
  Sex: Male
  Weight: 122.45 kg

DRUGS (1)
  1. LYRICA [Suspect]
     Indication: DIABETIC NEUROPATHY
     Dosage: 50 MG, 1X/DAY
     Route: 048
     Dates: start: 20130713

REACTIONS (2)
  - Feeling drunk [Unknown]
  - Hypoaesthesia [Unknown]
